FAERS Safety Report 13272640 (Version 1)
Quarter: 2017Q1

REPORT INFORMATION
  Report Type: Spontaneous
  Country: US (occurrence: US)
  Receive Date: 20170227
  Receipt Date: 20170227
  Transmission Date: 20170428
  Serious: No
  Sender: FDA-Public Use
  Company Number: US-PFIZER INC-2017080475

PATIENT
  Sex: Female

DRUGS (2)
  1. ASPIRIN /00002701/ [Suspect]
     Active Substance: ASPIRIN
  2. CELECOXIB. [Suspect]
     Active Substance: CELECOXIB

REACTIONS (1)
  - Drug ineffective [Unknown]
